FAERS Safety Report 25956513 (Version 2)
Quarter: 2025Q4

REPORT INFORMATION
  Report Type: Spontaneous
  Country: US (occurrence: US)
  Receive Date: 20251024
  Receipt Date: 20251030
  Transmission Date: 20260118
  Serious: No
  Sender: BAYER HEALTHCARE PHARMACEUTICALS INC.
  Company Number: US-BAYER-2025A139608

PATIENT
  Age: 68 Year
  Sex: Female

DRUGS (2)
  1. BETASERON [Suspect]
     Active Substance: INTERFERON BETA-1B
     Indication: Multiple sclerosis
  2. DEVICE [Suspect]
     Active Substance: DEVICE
     Indication: Multiple sclerosis

REACTIONS (3)
  - Injection site reaction [None]
  - Device operational issue [None]
  - Expired device used [None]

NARRATIVE: CASE EVENT DATE: 20251020
